FAERS Safety Report 6526403-7 (Version None)
Quarter: 2009Q4

REPORT INFORMATION
  Report Type: 
  Country: None (occurrence: None)
  Receive Date: 20091229
  Receipt Date: 20091210
  Transmission Date: 20100525
  Serious: Yes (Hospitalization)
  Sender: FDA-Public Use
  Company Number: 8054411

PATIENT
  Sex: Male

DRUGS (3)
  1. CERTOLIZUMAB PEGOL [Suspect]
     Indication: CROHN'S DISEASE
     Dosage: (400 MG 1X/MONTH, MONTHLY SUBCUTANEOUS)
     Route: 058
     Dates: start: 20090201
  2. PREDNISONE [Concomitant]
  3. ASACOL [Concomitant]

REACTIONS (8)
  - DEHYDRATION [None]
  - DIARRHOEA [None]
  - FAECALOMA [None]
  - GASTROINTESTINAL INFECTION [None]
  - HEADACHE [None]
  - NAUSEA [None]
  - VERTIGO [None]
  - WHITE BLOOD CELL COUNT INCREASED [None]
